FAERS Safety Report 9285489 (Version 1)
Quarter: 2013Q2

REPORT INFORMATION
  Report Type: Spontaneous
  Country: SG (occurrence: SG)
  Receive Date: 20130513
  Receipt Date: 20130513
  Transmission Date: 20140414
  Serious: Yes (Other)
  Sender: FDA-Public Use
  Company Number: SG-ROXANE LABORATORIES, INC.-2013-RO-00718RO

PATIENT
  Age: 58 Year
  Sex: Male

DRUGS (5)
  1. AZATHIOPRINE [Suspect]
     Indication: PEMPHIGUS
  2. AZATHIOPRINE [Suspect]
     Dosage: 100 MG
  3. PREDNISOLONE [Suspect]
     Indication: PEMPHIGUS
  4. PREDNISOLONE [Suspect]
     Dosage: 10 MG
  5. CORTICOSTEROID [Suspect]
     Indication: PEMPHIGUS
     Route: 061

REACTIONS (4)
  - Molluscum contagiosum [Recovered/Resolved]
  - Leukopenia [Unknown]
  - Cytomegalovirus infection [Unknown]
  - Iridocyclitis [Unknown]
